FAERS Safety Report 25951787 (Version 1)
Quarter: 2025Q4

REPORT INFORMATION
  Report Type: Spontaneous
  Country: US (occurrence: US)
  Receive Date: 20251023
  Receipt Date: 20251023
  Transmission Date: 20260118
  Serious: Yes (Hospitalization)
  Sender: MYLAN
  Company Number: US-MYLANLABS-2025M1084825

PATIENT
  Sex: Female
  Weight: 111.6 kg

DRUGS (2)
  1. GABAPENTIN [Suspect]
     Active Substance: GABAPENTIN
     Indication: Pain
     Dosage: 300 MILLIGRAM, BID (2 CAPSULE DAILY)
     Dates: start: 20211019, end: 20221011
  2. GABAPENTIN [Suspect]
     Active Substance: GABAPENTIN
     Indication: Pain
     Dosage: 300 MILLIGRAM, BID (2 CAPSULE DAILY)
     Dates: start: 20211019, end: 20221011

REACTIONS (3)
  - Back pain [Unknown]
  - Adverse event [Unknown]
  - Off label use [Unknown]
